FAERS Safety Report 25636220 (Version 1)
Quarter: 2025Q3

REPORT INFORMATION
  Report Type: Spontaneous
  Country: US (occurrence: US)
  Receive Date: 20250803
  Receipt Date: 20250803
  Transmission Date: 20251021
  Serious: Yes (Other)
  Sender: DR REDDYS
  Company Number: US-DRL-USA-USA/2025/07/011449

PATIENT
  Age: 54 Year
  Sex: Male

DRUGS (3)
  1. CAPECITABINE [Suspect]
     Active Substance: CAPECITABINE
     Indication: Squamous cell carcinoma of skin
  2. CARBOPLATIN [Concomitant]
     Active Substance: CARBOPLATIN
     Indication: Squamous cell carcinoma of skin
  3. CETUXIMAB [Concomitant]
     Active Substance: CETUXIMAB
     Indication: Squamous cell carcinoma of skin

REACTIONS (1)
  - Drug ineffective for unapproved indication [Unknown]
